FAERS Safety Report 7358849-1 (Version None)
Quarter: 2011Q1

REPORT INFORMATION
  Report Type: 
  Country: None (occurrence: None)
  Receive Date: 20110317
  Receipt Date: 20110309
  Transmission Date: 20110831
  Serious: Yes (Other)
  Sender: FDA-Public Use
  Company Number: B0703221A

PATIENT
  Age: 40 Year
  Sex: Male

DRUGS (1)
  1. ZYNTABAC [Suspect]
     Indication: SMOKING CESSATION THERAPY
     Route: 048
     Dates: start: 20110203, end: 20110201

REACTIONS (9)
  - HYPERTENSION [None]
  - DIZZINESS [None]
  - IRRITABILITY [None]
  - NERVOUSNESS [None]
  - HOSTILITY [None]
  - OCULAR HYPERAEMIA [None]
  - AGGRESSION [None]
  - PALLOR [None]
  - DELUSION [None]
